FAERS Safety Report 12250025 (Version 3)
Quarter: 2016Q4

REPORT INFORMATION
  Report Type: Other
  Country: US (occurrence: US)
  Receive Date: 20160408
  Receipt Date: 20161123
  Transmission Date: 20170207
  Serious: Yes (Hospitalization)
  Sender: FDA-Public Use
  Company Number: US-ACORDA-ACO_122981_2016

PATIENT
  Age: 47 Year
  Sex: Female
  Weight: 56.24 kg

DRUGS (28)
  1. BACLOFEN. [Concomitant]
     Active Substance: BACLOFEN
     Dosage: 10 MG, QID
     Route: 048
     Dates: start: 20130624
  2. MECLIZINE HCL [Concomitant]
     Active Substance: MECLIZINE HYDROCHLORIDE
     Dosage: 25 MG, TID
     Route: 048
  3. AMPYRA [Suspect]
     Active Substance: DALFAMPRIDINE
     Indication: MULTIPLE SCLEROSIS
     Dosage: 10 MG, BID
     Route: 048
     Dates: start: 20121023
  4. VALIUM [Concomitant]
     Active Substance: DIAZEPAM
     Indication: ANXIETY
     Dosage: 5 MG, Q 8 HRS
     Route: 065
     Dates: start: 20091210, end: 20110426
  5. AMBIEN [Concomitant]
     Active Substance: ZOLPIDEM TARTRATE
     Indication: PRODUCT USED FOR UNKNOWN INDICATION
     Dosage: 5 MG, HS
     Route: 048
     Dates: start: 20110728
  6. MYSOLINE [Concomitant]
     Active Substance: PRIMIDONE
     Indication: PRODUCT USED FOR UNKNOWN INDICATION
     Dosage: 25 MG, HS
     Route: 048
     Dates: start: 20130401
  7. VALIUM [Concomitant]
     Active Substance: DIAZEPAM
     Indication: DIZZINESS
     Dosage: 2 MG, 2 TABS HS, PRN
     Route: 065
     Dates: start: 20050415
  8. TOPAMAX [Concomitant]
     Active Substance: TOPIRAMATE
     Indication: PRODUCT USED FOR UNKNOWN INDICATION
     Dosage: 25 MG, TID
     Route: 048
     Dates: start: 20150105
  9. MECLIZINE HCL [Concomitant]
     Active Substance: MECLIZINE HYDROCHLORIDE
     Indication: PRODUCT USED FOR UNKNOWN INDICATION
     Dosage: 12.5 MG, TID
     Dates: start: 20150105
  10. BUSPAR [Concomitant]
     Active Substance: BUSPIRONE HYDROCHLORIDE
     Indication: PRODUCT USED FOR UNKNOWN INDICATION
     Dosage: 30 MG, BID
     Route: 065
     Dates: start: 20010115
  11. DEPAKOTE [Concomitant]
     Active Substance: DIVALPROEX SODIUM
     Indication: PRODUCT USED FOR UNKNOWN INDICATION
     Dosage: 250 MG, HS
     Route: 048
     Dates: start: 20060415
  12. DEPAKOTE [Concomitant]
     Active Substance: DIVALPROEX SODIUM
     Dosage: 500 MG, HS
     Route: 048
     Dates: start: 20141020
  13. VALIUM [Concomitant]
     Active Substance: DIAZEPAM
     Dosage: 2 MG, Q 8 HRS, PRN
     Route: 065
     Dates: start: 20110426
  14. DIPHENHYDRAMINE. [Concomitant]
     Active Substance: DIPHENHYDRAMINE
     Indication: PRODUCT USED FOR UNKNOWN INDICATION
     Dosage: 50 MG, HS, PRN
     Route: 048
     Dates: start: 20081111
  15. AMANTADINE HCL [Concomitant]
     Active Substance: AMANTADINE HYDROCHLORIDE
     Indication: PRODUCT USED FOR UNKNOWN INDICATION
     Dosage: 100 MG, QAM
     Route: 048
     Dates: start: 20090120
  16. BACLOFEN. [Concomitant]
     Active Substance: BACLOFEN
     Indication: PRODUCT USED FOR UNKNOWN INDICATION
     Dosage: 10 MG, TID
     Route: 048
     Dates: start: 20110526
  17. BACLOFEN. [Concomitant]
     Active Substance: BACLOFEN
     Dosage: 20 MG, TID
     Route: 048
     Dates: start: 20140728
  18. VALIUM [Concomitant]
     Active Substance: DIAZEPAM
     Dosage: 5 MG, Q 8 HRS
     Route: 065
     Dates: start: 20120824
  19. VALIUM [Concomitant]
     Active Substance: DIAZEPAM
     Dosage: 5 MG, AS DIRECTED PRIOR TO MRI
     Route: 065
     Dates: start: 20150731, end: 20160425
  20. AMANTADINE HCL [Concomitant]
     Active Substance: AMANTADINE HYDROCHLORIDE
     Dosage: 100 MG, Q AM AND Q NOON
     Route: 048
     Dates: start: 20100827
  21. FISH OIL [Concomitant]
     Active Substance: FISH OIL
     Indication: PRODUCT USED FOR UNKNOWN INDICATION
     Dosage: 1 DF, QD
     Route: 048
  22. MYSOLINE [Concomitant]
     Active Substance: PRIMIDONE
     Dosage: 50 MG, TID
     Route: 048
     Dates: start: 20130401
  23. DOXEPIN HCL [Concomitant]
     Active Substance: DOXEPIN HYDROCHLORIDE
     Indication: PRODUCT USED FOR UNKNOWN INDICATION
     Dosage: 10 MG, HS
     Route: 048
     Dates: start: 20140120
  24. MECLIZINE HCL [Concomitant]
     Active Substance: MECLIZINE HYDROCHLORIDE
     Dosage: 50 MG, 5 TIMES A DAY
     Route: 048
  25. COPAXONE [Concomitant]
     Active Substance: GLATIRAMER ACETATE
     Indication: PRODUCT USED FOR UNKNOWN INDICATION
     Dosage: UNK UNK, QD
     Route: 058
     Dates: start: 20121023
  26. WELLBUTRIN XL [Concomitant]
     Active Substance: BUPROPION HYDROCHLORIDE
     Indication: PRODUCT USED FOR UNKNOWN INDICATION
     Dosage: 150 MG, BID
     Route: 048
     Dates: start: 20130401
  27. ESTROVEN [Concomitant]
     Active Substance: DIETARY SUPPLEMENT
     Indication: PRODUCT USED FOR UNKNOWN INDICATION
     Dosage: 1 DF, HS
     Route: 048
     Dates: start: 20051201
  28. LATANOPROST. [Concomitant]
     Active Substance: LATANOPROST
     Indication: PRODUCT USED FOR UNKNOWN INDICATION
     Dosage: 1 GTT, HS
     Route: 065
     Dates: start: 20150731

REACTIONS (11)
  - Nystagmus [Not Recovered/Not Resolved]
  - Muscle spasms [Unknown]
  - Vertigo [Not Recovered/Not Resolved]
  - Colitis [Not Recovered/Not Resolved]
  - Nausea [Not Recovered/Not Resolved]
  - Tremor [Not Recovered/Not Resolved]
  - Neck pain [Unknown]
  - Inner ear disorder [Unknown]
  - Pain in extremity [Unknown]
  - Clostridium difficile infection [Recovered/Resolved]
  - Sinus disorder [Unknown]

NARRATIVE: CASE EVENT DATE: 20130221
